FAERS Safety Report 7791551-0 (Version None)
Quarter: 2011Q4

REPORT INFORMATION
  Report Type: 
  Country: None (occurrence: None)
  Receive Date: 20111003
  Receipt Date: 20110920
  Transmission Date: 20120403
  Serious: Yes (Hospitalization, Other)
  Sender: FDA-Public Use
  Company Number: US-BAYER-2011-055290

PATIENT
  Age: 25 Year
  Sex: Female
  Weight: 97.506 kg

DRUGS (6)
  1. DROSPIRENONE AND ETHINYL ESTRADIOL [Suspect]
     Indication: CONTRACEPTION
     Dosage: UNK
     Dates: start: 20030101, end: 20080101
  2. CIPROFLOXACIN [Concomitant]
     Route: 048
  3. PROVENTIL [Concomitant]
     Dosage: UNK UNK, PRN
     Route: 055
  4. FLAGYL [Concomitant]
     Route: 048
  5. YASMIN [Suspect]
     Indication: CONTRACEPTION
     Dosage: UNK
     Dates: start: 20030101, end: 20080101
  6. LORTAB [Concomitant]
     Route: 048

REACTIONS (4)
  - CHOLECYSTITIS CHRONIC [None]
  - CHOLECYSTECTOMY [None]
  - INJURY [None]
  - PAIN [None]
